FAERS Safety Report 10590149 (Version 1)
Quarter: 2014Q4

REPORT INFORMATION
  Report Type: Spontaneous
  Country: US (occurrence: None)
  Receive Date: 20141117
  Receipt Date: 20141117
  Transmission Date: 20150529
  Serious: No
  Sender: FDA-Public Use
  Company Number: None

PATIENT

DRUGS (3)
  1. FLUTICASONE PROPIONATE. [Suspect]
     Active Substance: FLUTICASONE PROPIONATE
  2. ADVAIR HFA [Suspect]
     Active Substance: FLUTICASONE PROPIONATE\SALMETEROL XINAFOATE
  3. SALMETEROL XINAFOATE [Suspect]
     Active Substance: SALMETEROL XINAFOATE

REACTIONS (10)
  - Infection [None]
  - Upper respiratory tract infection [None]
  - Toothache [None]
  - Road traffic accident [None]
  - Impaired work ability [None]
  - Dental caries [None]
  - Teeth brittle [None]
  - Tooth fracture [None]
  - Myocardial infarction [None]
  - Dry mouth [None]
